FAERS Safety Report 12617937 (Version 1)
Quarter: 2016Q3

REPORT INFORMATION
  Report Type: Spontaneous
  Country: US (occurrence: None)
  Receive Date: 20160802
  Receipt Date: 20160802
  Transmission Date: 20161109
  Serious: No
  Sender: FDA-Public Use
  Company Number: None

PATIENT

DRUGS (2)
  1. TENORETIC [Suspect]
     Active Substance: ATENOLOL\CHLORTHALIDONE
  2. ATENOLOL. [Suspect]
     Active Substance: ATENOLOL

REACTIONS (3)
  - Intercepted drug dispensing error [None]
  - Transcription medication error [None]
  - Drug dispensing error [None]
